FAERS Safety Report 5413246-0 (Version None)
Quarter: 2007Q3

REPORT INFORMATION
  Report Type: 
  Country: None (occurrence: None)
  Receive Date: 20070814
  Receipt Date: 20070803
  Transmission Date: 20080115
  Serious: Yes (Death, Hospitalization)
  Sender: FDA-Public Use
  Company Number: HQWYE385603AUG07

PATIENT
  Sex: Male

DRUGS (13)
  1. INIPOMP [Suspect]
     Route: 048
  2. COMTAN [Suspect]
     Indication: PARKINSON'S DISEASE
     Dosage: ^DF^    UNKNOWN FREQUENCY
  3. CEBUTID [Suspect]
     Route: 048
     Dates: start: 20070606
  4. PAROXETINE [Suspect]
     Route: 048
  5. SINEMET [Suspect]
     Indication: PARKINSON'S DISEASE
     Dosage: ^DF^ UNKNOWN FREQUENCY
     Route: 048
  6. PLAVIX [Concomitant]
     Dosage: ^DF^ UNKNOWN FREQUENCY
     Route: 065
     Dates: start: 19970101, end: 20070606
  7. MODOPAR [Suspect]
     Indication: PARKINSON'S DISEASE
     Dosage: ^DF^ UNKNOWN FREQUENCY
     Route: 048
  8. OMIX [Suspect]
     Route: 048
  9. IMOVANE [Suspect]
     Route: 048
  10. PERMIXON [Suspect]
     Route: 048
  11. XANAX [Suspect]
     Route: 048
     Dates: start: 20070717
  12. MOTILIUM [Suspect]
     Route: 048
  13. REQUIP [Suspect]
     Indication: PARKINSON'S DISEASE
     Route: 048

REACTIONS (2)
  - CEREBRAL HAEMATOMA [None]
  - CEREBRAL HAEMORRHAGE [None]
